FAERS Safety Report 8816618 (Version 1)
Quarter: 2012Q4

REPORT INFORMATION
  Report Type: Spontaneous
  Country: PT (occurrence: None)
  Receive Date: 20120928
  Receipt Date: 20120928
  Transmission Date: 20130627
  Serious: Yes (Other)
  Sender: FDA-Public Use
  Company Number: AUR-APL-2012-04160

PATIENT
  Age: 5 Year

DRUGS (1)
  1. AMOXICILLIN + CLAVULANIC ACID [Suspect]
     Indication: TOOTH ABSCESS

REACTIONS (8)
  - Pyrexia [None]
  - Jaw disorder [None]
  - Dysphagia [None]
  - Salivary hypersecretion [None]
  - Trismus [None]
  - Ludwig angina [None]
  - Cellulitis [None]
  - Dental caries [None]
